FAERS Safety Report 9330965 (Version 5)
Quarter: 2013Q4

REPORT INFORMATION
  Report Type: Spontaneous
  Country: US (occurrence: US)
  Receive Date: 20130605
  Receipt Date: 20131220
  Transmission Date: 20140711
  Serious: Yes (Hospitalization)
  Sender: FDA-Public Use
  Company Number: US-009507513-1306USA001581

PATIENT
  Age: 57 Year
  Sex: Female
  Weight: 83.45 kg

DRUGS (15)
  1. VICTRELIS [Suspect]
     Indication: HEPATITIS C
     Dosage: 800 MG, TID
     Route: 048
     Dates: start: 20130430, end: 20130703
  2. VICTRELIS [Suspect]
     Dosage: 800 MG, TID
     Route: 048
     Dates: start: 20130706
  3. VICTRELIS [Suspect]
     Dosage: 800 MG, TID
     Route: 048
  4. RIBAPAK [Suspect]
     Dosage: 1000/DAY
     Dates: start: 20130420
  5. PEGASYS [Suspect]
     Dosage: 180 MICROGRAM
     Dates: start: 20130420
  6. PRINIVIL [Concomitant]
  7. HYDRODIURIL [Concomitant]
  8. PANTOPRAZOLE [Concomitant]
     Dosage: 40 MG DAILY
     Dates: start: 20121102
  9. NADOLOL [Concomitant]
     Dosage: 20 MG DAILY
     Dates: start: 20120710
  10. OMEPRAZOLE [Concomitant]
     Dosage: 20 MG DAILY
     Dates: start: 20120614
  11. METRONIDAZOLE [Concomitant]
     Dosage: 500 MG DAILY
     Dates: start: 20130614
  12. CLARITHROMYCIN [Concomitant]
  13. LASIX (FUROSEMIDE) [Concomitant]
  14. SPIRONOLACTONE [Concomitant]
  15. VITAMINS (UNSPECIFIED) [Concomitant]

REACTIONS (17)
  - Blood sodium decreased [Recovered/Resolved]
  - Blood potassium decreased [Recovered/Resolved]
  - Fatigue [Unknown]
  - Generalised oedema [Unknown]
  - Feeling cold [Unknown]
  - Skin warm [Unknown]
  - Anaemia [Not Recovered/Not Resolved]
  - Nausea [Recovered/Resolved]
  - Abdominal distension [Recovered/Resolved]
  - Blood glucose increased [Unknown]
  - Blood calcium decreased [Unknown]
  - Aspartate aminotransferase increased [Unknown]
  - Alanine aminotransferase increased [Unknown]
  - Blood albumin decreased [Unknown]
  - Albumin globulin ratio decreased [Unknown]
  - Drug dose omission [Recovered/Resolved]
  - White blood cell count decreased [Unknown]
